FAERS Safety Report 5230375-5 (Version None)
Quarter: 2007Q1

REPORT INFORMATION
  Report Type: 
  Country: None (occurrence: None)
  Receive Date: 20070206
  Receipt Date: 20070126
  Transmission Date: 20070707
  Serious: Yes (Other)
  Sender: FDA-Public Use
  Company Number: PHBS2007BR01762

PATIENT
  Age: 13 Year
  Sex: Male
  Weight: 62 kg

DRUGS (1)
  1. TOFRANIL [Suspect]
     Indication: CONVULSION
     Dosage: 10 MG, QD
     Route: 048

REACTIONS (4)
  - DRUG DEPENDENCE [None]
  - HALLUCINATION [None]
  - INSOMNIA [None]
  - PYREXIA [None]
